FAERS Safety Report 6399305-7 (Version None)
Quarter: 2009Q4

REPORT INFORMATION
  Report Type: 
  Country: None (occurrence: None)
  Receive Date: 20091014
  Receipt Date: 20071108
  Transmission Date: 20100525
  Serious: Yes (Hospitalization, Other)
  Sender: FDA-Public Use
  Company Number: US-ASTRAZENECA-2006UW27965

PATIENT
  Age: 54 Year
  Sex: Female
  Weight: 85.7 kg

DRUGS (5)
  1. SEROQUEL [Suspect]
     Route: 048
     Dates: start: 19970101
  2. SEROQUEL [Suspect]
     Dosage: 100-900 MG
     Route: 048
     Dates: start: 19990210
  3. RISPERDAL [Concomitant]
     Route: 048
     Dates: start: 19990101
  4. DEPAKOTE [Concomitant]
     Route: 048
     Dates: start: 19990101
  5. COGENTIN [Concomitant]
     Route: 048
     Dates: start: 19990101

REACTIONS (6)
  - DIABETES MELLITUS [None]
  - DIABETIC GASTROPARESIS [None]
  - GLUCOSE TOLERANCE IMPAIRED [None]
  - HYPOGLYCAEMIA [None]
  - PANCREATITIS [None]
  - TYPE 1 DIABETES MELLITUS [None]
